FAERS Safety Report 10009086 (Version 1)
Quarter: 2014Q1

REPORT INFORMATION
  Report Type: Report from Study
  Country: US (occurrence: US)
  Receive Date: 20140313
  Receipt Date: 20140313
  Transmission Date: 20141002
  Serious: Yes (Other)
  Sender: FDA-Public Use
  Company Number: US-ABBVIE-14P-163-1210534-00

PATIENT
  Age: 64 Year
  Sex: Male
  Weight: 74.91 kg

DRUGS (4)
  1. HUMIRA [Suspect]
     Indication: CROHN^S DISEASE
     Dates: start: 2011, end: 2011
  2. HUMIRA [Suspect]
  3. HUMIRA [Suspect]
     Dates: start: 2011, end: 20140201
  4. CHOLESTYRAMINE POWDER [Concomitant]
     Indication: DYSPEPSIA

REACTIONS (1)
  - Dental caries [Recovered/Resolved]
